FAERS Safety Report 23317898 (Version 1)
Quarter: 2023Q4

REPORT INFORMATION
  Report Type: Report from Study
  Country: US (occurrence: US)
  Receive Date: 20231219
  Receipt Date: 20231219
  Transmission Date: 20240110
  Serious: Yes (Hospitalization)
  Sender: FDA-Public Use
  Company Number: US-ABBVIE-5546289

PATIENT
  Sex: Male

DRUGS (1)
  1. VENCLEXTA [Suspect]
     Active Substance: VENETOCLAX
     Indication: Acute myeloid leukaemia
     Dosage: STRENGTH: 100MG (1/BOX)?TAKE 2 TABLETS BY MOUTH ONCE DAILY WITH FOOD AND A FULL GLASS OF WATER
     Route: 048

REACTIONS (3)
  - Full blood count decreased [Recovering/Resolving]
  - Atrial fibrillation [Recovering/Resolving]
  - Pneumonia [Recovering/Resolving]
